FAERS Safety Report 7770879-4 (Version None)
Quarter: 2011Q3

REPORT INFORMATION
  Report Type: 
  Country: None (occurrence: None)
  Receive Date: 20110922
  Receipt Date: 20110113
  Transmission Date: 20111222
  Serious: Yes (Other)
  Sender: FDA-Public Use
  Company Number: US-ASTRAZENECA-2008UW11511

PATIENT
  Age: 465 Month
  Sex: Male
  Weight: 142.9 kg

DRUGS (18)
  1. SYNTHROID [Concomitant]
     Dates: start: 20020701
  2. ATENOLOL [Concomitant]
     Dates: start: 20020701
  3. SEROQUEL [Suspect]
     Indication: DEPRESSION
     Dosage: 100-300 MG
     Route: 048
     Dates: start: 20020501, end: 20060701
  4. SEROQUEL [Suspect]
     Indication: SLEEP APNOEA SYNDROME
     Dosage: 100-300 MG
     Route: 048
     Dates: start: 20020501, end: 20060701
  5. SEROQUEL [Suspect]
     Dosage: 100 TO 300 MG
     Route: 048
     Dates: start: 20020502
  6. SPIRONOLACTONE [Concomitant]
     Dates: start: 20020701
  7. SEROQUEL [Suspect]
     Indication: INSOMNIA
     Dosage: 100-300 MG
     Route: 048
     Dates: start: 20020501, end: 20060701
  8. SEROQUEL [Suspect]
     Dosage: 100 TO 300 MG
     Route: 048
     Dates: start: 20020502
  9. REMERON [Concomitant]
     Indication: INSOMNIA
     Dosage: 15 TO 30 MG
     Dates: start: 20020101
  10. GEMFIBROZIL [Concomitant]
     Dates: start: 20020701
  11. DIGOXIN [Concomitant]
     Dates: start: 20020701
  12. SEROQUEL [Suspect]
     Dosage: 100 TO 300 MG
     Route: 048
     Dates: start: 20020502
  13. REMERON [Concomitant]
     Indication: DEPRESSION
     Dosage: 15 TO 30 MG
     Dates: start: 20020101
  14. MONOPRIL [Concomitant]
     Dates: start: 20020701
  15. LASIX [Concomitant]
     Dates: start: 20020701
  16. REMERON [Concomitant]
     Indication: SLEEP DISORDER
     Dosage: 15 TO 30 MG
     Dates: start: 20020101
  17. CELEBREX [Concomitant]
     Dosage: 200 MG QD PRN
     Dates: start: 20020701
  18. PREVACID [Concomitant]
     Dosage: 30 MG QD PRN
     Dates: start: 20020701

REACTIONS (3)
  - TYPE 2 DIABETES MELLITUS [None]
  - BLOOD CHOLESTEROL INCREASED [None]
  - DIABETIC KETOACIDOSIS [None]
